FAERS Safety Report 7323374-0 (Version None)
Quarter: 2011Q1

REPORT INFORMATION
  Report Type: 
  Country: None (occurrence: None)
  Receive Date: 20110301
  Receipt Date: 20110218
  Transmission Date: 20110831
  Serious: Yes (Hospitalization)
  Sender: FDA-Public Use
  Company Number: JP-JNJFOC-20110206924

PATIENT
  Sex: Male

DRUGS (3)
  1. FLORID [Suspect]
     Indication: ILL-DEFINED DISORDER
     Route: 049
  2. WARFARIN POTASSIUM [Interacting]
     Indication: ILL-DEFINED DISORDER
     Route: 048
  3. FLORID [Suspect]
     Route: 049

REACTIONS (3)
  - HAEMORRHAGE [None]
  - DRUG INTERACTION [None]
  - INTERNATIONAL NORMALISED RATIO INCREASED [None]
